FAERS Safety Report 5339936-6 (Version None)
Quarter: 2007Q2

REPORT INFORMATION
  Report Type: 
  Country: None (occurrence: None)
  Receive Date: 20070531
  Receipt Date: 20060915
  Transmission Date: 20071010
  Serious: Yes (Death)
  Sender: FDA-Public Use
  Company Number: IT-BAXTER-2006BH013386

PATIENT
  Age: 63 Year
  Sex: Male

DRUGS (2)
  1. HEPARIN SODIUM [Suspect]
     Indication: AORTIC VALVE REPLACEMENT
     Route: 065
  2. HEPARIN SODIUM [Suspect]
     Route: 065

REACTIONS (6)
  - ARTERIAL THROMBOSIS [None]
  - CIRCULATORY COLLAPSE [None]
  - HEPARIN-INDUCED THROMBOCYTOPENIA [None]
  - MULTI-ORGAN FAILURE [None]
  - MYOCARDIAL INFARCTION [None]
  - VENTRICULAR DYSFUNCTION [None]
